FAERS Safety Report 7672534-8 (Version None)
Quarter: 2011Q3

REPORT INFORMATION
  Report Type: 
  Country: None (occurrence: None)
  Receive Date: 20110809
  Receipt Date: 20110804
  Transmission Date: 20111222
  Serious: Yes (Other)
  Sender: FDA-Public Use
  Company Number: BR-PFIZER INC-2011178743

PATIENT
  Sex: Male
  Weight: 2.86 kg

DRUGS (7)
  1. FLUCONAZOLE [Concomitant]
     Indication: SEPSIS
  2. POLYGAM S/D [Concomitant]
     Indication: SEPSIS
     Dosage: UNK
  3. METRONIDAZOLE HCL [Suspect]
     Dosage: UNK
  4. TEICOPLANIN [Concomitant]
     Indication: SEPSIS
  5. AMIKACIN [Concomitant]
     Indication: SEPSIS
  6. CLINDAMYCIN [Concomitant]
     Indication: SEPSIS
  7. CIPROFLOXACIN [Suspect]
     Dosage: UNK

REACTIONS (1)
  - THROMBOSIS MESENTERIC VESSEL [None]
